FAERS Safety Report 16023087 (Version 1)
Quarter: 2019Q1

REPORT INFORMATION
  Report Type: Spontaneous
  Country: US (occurrence: US)
  Receive Date: 20190301
  Receipt Date: 20190301
  Transmission Date: 20190418
  Serious: Yes (Other)
  Sender: FDA-Public Use
  Company Number: US-MYLANLABS-2019M1017632

PATIENT

DRUGS (2)
  1. PREDNISONE TABLETS USP [Suspect]
     Active Substance: PREDNISONE
     Indication: HYPERSENSITIVITY
     Dosage: UNK
     Route: 048
     Dates: start: 20190213
  2. PREDNISONE TABLETS USP [Suspect]
     Active Substance: PREDNISONE
     Dosage: 2 DOSAGE FORM
     Dates: start: 20190214, end: 20190215

REACTIONS (3)
  - Vocal cord disorder [Recovered/Resolved]
  - Swelling [Recovered/Resolved]
  - Urticaria [Recovered/Resolved]

NARRATIVE: CASE EVENT DATE: 20190213
